FAERS Safety Report 18250451 (Version 2)
Quarter: 2020Q4

REPORT INFORMATION
  Report Type: Report from Study
  Country: CA (occurrence: CA)
  Receive Date: 20200909
  Receipt Date: 20201120
  Transmission Date: 20210113
  Serious: Yes (Other)
  Sender: FDA-Public Use
  Company Number: CA-JNJFOC-20200720245

PATIENT
  Age: 81 Year
  Sex: Female
  Weight: 62.8 kg

DRUGS (3)
  1. REMICADE [Suspect]
     Active Substance: INFLIXIMAB
     Indication: RHEUMATOID ARTHRITIS
     Route: 042
  2. REMICADE [Suspect]
     Active Substance: INFLIXIMAB
     Route: 042
     Dates: start: 20200601
  3. REMICADE [Suspect]
     Active Substance: INFLIXIMAB
     Dosage: LAST DOSE ON 13-JUL-2020
     Route: 042

REACTIONS (3)
  - Tooth infection [Recovered/Resolved]
  - Tooth extraction [Unknown]
  - Clostridium difficile infection [Recovering/Resolving]

NARRATIVE: CASE EVENT DATE: 20200610
